FAERS Safety Report 11912640 (Version 1)
Quarter: 2016Q1

REPORT INFORMATION
  Report Type: Spontaneous
  Country: US (occurrence: None)
  Receive Date: 20160112
  Receipt Date: 20160112
  Transmission Date: 20160526
  Serious: No
  Sender: FDA-Public Use
  Company Number: None

PATIENT
  Age: 52 Year
  Sex: Female
  Weight: 68.04 kg

DRUGS (3)
  1. MULTI [Concomitant]
  2. AMNESTEEM [Suspect]
     Active Substance: ISOTRETINOIN
     Indication: ACNE CYSTIC
     Route: 048
     Dates: start: 20130920, end: 20131120
  3. VIVELLE-DOT [Concomitant]
     Active Substance: ESTRADIOL

REACTIONS (2)
  - Vulvovaginal pain [None]
  - Product substitution issue [None]

NARRATIVE: CASE EVENT DATE: 20131118
